FAERS Safety Report 23168184 (Version 3)
Quarter: 2024Q1

REPORT INFORMATION
  Report Type: Spontaneous
  Country: BR (occurrence: BR)
  Receive Date: 20231109
  Receipt Date: 20240102
  Transmission Date: 20240409
  Serious: Yes (Other)
  Sender: FDA-Public Use
  Company Number: BR-BoehringerIngelheim-2023-BI-271126

PATIENT
  Age: 78 Year
  Sex: Female
  Weight: 68 kg

DRUGS (5)
  1. MICARDIS [Suspect]
     Active Substance: TELMISARTAN
     Indication: Blood pressure increased
     Dosage: 1 TABLET EVERY NIGHT BEFORE BED.
     Route: 048
  2. MICARDIS [Suspect]
     Active Substance: TELMISARTAN
     Dosage: 1 TABLET EVERY NIGHT BEFORE BED.
     Route: 048
  3. SULBUTIAMINE [Concomitant]
     Active Substance: SULBUTIAMINE
     Indication: Hypertension
     Dosage: 1 TABLET 3 TIMES A DAY (3 TABLETS A DAY IN TOTAL).
     Route: 048
  4. ASPIRIN [Concomitant]
     Active Substance: ASPIRIN
     Indication: Hypertension
     Dosage: 1 TABLET OF 100 MG, 1 TIME A DAY, TOGETHER WITH INDAPAMIDE.
     Route: 048
  5. INDAPAMIDE [Concomitant]
     Active Substance: INDAPAMIDE
     Indication: Hypertension
     Dosage: 1 TABLET A DAY, THEN AT LUNCHTIME, TOGETHER WITH ASPIRIN.
     Route: 048

REACTIONS (6)
  - Haemorrhagic stroke [Recovered/Resolved with Sequelae]
  - Monoplegia [Not Recovered/Not Resolved]
  - Hypoacusis [Not Recovered/Not Resolved]
  - Vision blurred [Not Recovered/Not Resolved]
  - Hypertension [Recovered/Resolved]
  - Product blister packaging issue [Not Recovered/Not Resolved]

NARRATIVE: CASE EVENT DATE: 20220101
